FAERS Safety Report 13270140 (Version 1)
Quarter: 2017Q1

REPORT INFORMATION
  Report Type: Spontaneous
  Country: AU (occurrence: AU)
  Receive Date: 20170224
  Receipt Date: 20170224
  Transmission Date: 20170428
  Serious: Yes (Other)
  Sender: FDA-Public Use
  Company Number: PHHY2017AU025972

PATIENT
  Sex: Male

DRUGS (1)
  1. ZYKADIA [Suspect]
     Active Substance: CERITINIB
     Indication: PRODUCT USED FOR UNKNOWN INDICATION
     Route: 048

REACTIONS (5)
  - Malignant neoplasm progression [Recovering/Resolving]
  - Gastrointestinal disorder [Recovering/Resolving]
  - Neoplasm [Recovering/Resolving]
  - Weight decreased [Unknown]
  - Liver function test increased [Recovering/Resolving]
